FAERS Safety Report 5923638-9 (Version None)
Quarter: 2008Q4

REPORT INFORMATION
  Report Type: 
  Country: None (occurrence: None)
  Receive Date: 20081020
  Receipt Date: 20081014
  Transmission Date: 20090506
  Serious: Yes (Death)
  Sender: FDA-Public Use
  Company Number: JP-ASTRAZENECA-2008AP02780

PATIENT
  Age: 65 Year
  Sex: Male
  Weight: 58 kg

DRUGS (10)
  1. IRESSA [Suspect]
     Indication: LUNG ADENOCARCINOMA
     Route: 048
     Dates: start: 20080322, end: 20080415
  2. ARTIST [Concomitant]
     Indication: CARDIAC FAILURE
     Route: 048
     Dates: start: 20080214, end: 20080415
  3. LASIX [Concomitant]
     Indication: CARDIAC FAILURE
     Route: 048
     Dates: start: 20080301, end: 20080415
  4. SUNRYTHM [Concomitant]
     Indication: ATRIAL FIBRILLATION
     Route: 048
     Dates: start: 20080312, end: 20080415
  5. DECADRON [Concomitant]
     Indication: METASTASES TO CENTRAL NERVOUS SYSTEM
     Route: 048
     Dates: start: 20080322, end: 20080415
  6. BIOFERMIN [Concomitant]
     Indication: CONSTIPATION
     Route: 048
     Dates: start: 20080404, end: 20080415
  7. MAGNESIUM OXIDE [Concomitant]
     Indication: CONSTIPATION
     Route: 048
     Dates: start: 20080408, end: 20080415
  8. FERROMIA [Concomitant]
     Indication: HAEMOLYTIC ANAEMIA
     Route: 048
     Dates: start: 20080410, end: 20080415
  9. ADONA [Concomitant]
     Indication: HAEMOPTYSIS
     Route: 048
     Dates: start: 20080411, end: 20080415
  10. TRANSAMIN [Concomitant]
     Indication: HAEMOPTYSIS
     Route: 048
     Dates: start: 20080411, end: 20080415

REACTIONS (2)
  - LUNG DISORDER [None]
  - PLATELET COUNT DECREASED [None]
